FAERS Safety Report 5658926-7 (Version None)
Quarter: 2008Q1

REPORT INFORMATION
  Report Type: 
  Country: None (occurrence: None)
  Receive Date: 20080310
  Receipt Date: 20070509
  Transmission Date: 20080703
  Serious: No
  Sender: FDA-Public Use
  Company Number: US-BAYER-200711466BCC

PATIENT
  Age: 66 Year
  Sex: Male
  Weight: 102 kg

DRUGS (8)
  1. ALEVE [Suspect]
     Indication: ARTHRALGIA
     Dosage: UNIT DOSE: 220 MG
     Route: 048
     Dates: start: 20070502, end: 20070507
  2. BENICAR [Concomitant]
  3. ALDACTONE [Concomitant]
  4. DOXAZOSIN MESYLATE [Concomitant]
  5. PRILOSEC [Concomitant]
  6. LEXAPRO [Concomitant]
  7. ZOCOR [Concomitant]
  8. LABETALOL HCL [Concomitant]

REACTIONS (3)
  - BLISTER [None]
  - PRURITUS [None]
  - SKIN HAEMORRHAGE [None]
